FAERS Safety Report 6075090-3 (Version None)
Quarter: 2009Q1

REPORT INFORMATION
  Report Type: 
  Country: None (occurrence: None)
  Receive Date: 20090210
  Receipt Date: 20090210
  Transmission Date: 20090719
  Serious: Yes (Hospitalization)
  Sender: FDA-Public Use
  Company Number: None

PATIENT
  Sex: Female
  Weight: 70 kg

DRUGS (1)
  1. MELPHALAN [Suspect]
     Indication: HODGKIN'S DISEASE
     Dosage: 220MG/M2 ONCE IV (ONE DOSE)
     Route: 042
     Dates: start: 20070416

REACTIONS (3)
  - HERPES ZOSTER [None]
  - TREATMENT NONCOMPLIANCE [None]
  - TRIGEMINAL NERVE DISORDER [None]
